FAERS Safety Report 8209634-X (Version None)
Quarter: 2012Q1

REPORT INFORMATION
  Report Type: 
  Country: None (occurrence: None)
  Receive Date: 20120314
  Receipt Date: 20120301
  Transmission Date: 20120608
  Serious: Yes (Other)
  Sender: FDA-Public Use
  Company Number: NO-MYLANLABS-2012S1004617

PATIENT
  Sex: Male

DRUGS (2)
  1. LYRICA [Concomitant]
     Route: 064
     Dates: start: 20110301, end: 20111213
  2. BACLOFEN [Suspect]
     Route: 064
     Dates: start: 20110301, end: 20111213

REACTIONS (2)
  - DRUG WITHDRAWAL SYNDROME NEONATAL [None]
  - MATERNAL EXPOSURE DURING PREGNANCY [None]
